FAERS Safety Report 6379231-X (Version None)
Quarter: 2009Q3

REPORT INFORMATION
  Report Type: 
  Country: None (occurrence: None)
  Receive Date: 20090923
  Receipt Date: 20090923
  Transmission Date: 20100115
  Serious: Yes (Life-Threatening, Hospitalization)
  Sender: FDA-Public Use
  Company Number: None

PATIENT
  Age: 31 Year
  Sex: Male
  Weight: 92.9874 kg

DRUGS (2)
  1. MIRAPEX [Suspect]
     Indication: INSOMNIA
     Dosage: 0.25 ONCE PO
     Route: 048
     Dates: start: 20041001, end: 20090921
  2. MIRAPEX [Suspect]
     Indication: RESTLESS LEGS SYNDROME
     Dosage: 0.25 ONCE PO
     Route: 048
     Dates: start: 20041001, end: 20090921

REACTIONS (5)
  - DRUG DEPENDENCE [None]
  - ECONOMIC PROBLEM [None]
  - GAMBLING [None]
  - HYPERSEXUALITY [None]
  - OBSESSIVE-COMPULSIVE DISORDER [None]
